FAERS Safety Report 7650282-8 (Version None)
Quarter: 2011Q3

REPORT INFORMATION
  Report Type: 
  Country: None (occurrence: None)
  Receive Date: 20110802
  Receipt Date: 20110708
  Transmission Date: 20111222
  Serious: Yes (Other)
  Sender: FDA-Public Use
  Company Number: US-ROCHE-793504

PATIENT
  Sex: Female
  Weight: 104.7 kg

DRUGS (10)
  1. IRINOTECAN HCL [Concomitant]
     Dosage: 360 MG, Q2W
     Route: 042
     Dates: start: 20101101, end: 20110110
  2. FLUOROURACIL [Concomitant]
     Dosage: 4800 MG, CONTINUOUS
     Route: 042
     Dates: start: 20101101, end: 20110110
  3. FLUOROURACIL [Concomitant]
     Dosage: 800 MG, Q2W
     Route: 040
     Dates: start: 20101101, end: 20110110
  4. FLUOROURACIL [Concomitant]
     Dosage: 4800 MG, CONTINUOUS
     Route: 042
     Dates: start: 20101101, end: 20110110
  5. LEUCOVORIN CALCIUM [Concomitant]
     Indication: COLON CANCER RECURRENT
     Dosage: 200 MG, Q2W
     Route: 042
     Dates: start: 20101101, end: 20110110
  6. BEVACIZUMAB [Suspect]
     Dosage: 505 MG, Q2W
     Route: 042
     Dates: start: 20101101, end: 20110110
  7. BEVACIZUMAB [Suspect]
     Dosage: 505 MG, Q2W
     Route: 042
     Dates: start: 20101101, end: 20110110
  8. FLUOROURACIL [Concomitant]
     Indication: COLON CANCER RECURRENT
     Dosage: 800 MG, Q2W
     Route: 040
     Dates: start: 20101101, end: 20110110
  9. LEUCOVORIN CALCIUM [Concomitant]
     Dosage: 200 MG, Q2W
     Route: 042
     Dates: start: 20101101, end: 20110110
  10. IRINOTECAN HCL [Concomitant]
     Indication: COLON CANCER RECURRENT
     Dosage: 360 MG, Q2W
     Route: 042
     Dates: start: 20101101, end: 20110110

REACTIONS (1)
  - AORTIC ANEURYSM RUPTURE [None]
